FAERS Safety Report 17511290 (Version 3)
Quarter: 2020Q1

REPORT INFORMATION
  Report Type: Report from Study
  Country: US (occurrence: US)
  Receive Date: 20200306
  Receipt Date: 20200319
  Transmission Date: 20200409
  Serious: Yes (Hospitalization)
  Sender: FDA-Public Use
  Company Number: US-JNJFOC-20200240465

PATIENT
  Age: 18 Year
  Sex: Female
  Weight: 36.1 kg

DRUGS (4)
  1. ATARAX [Concomitant]
     Active Substance: HYDROXYZINE HYDROCHLORIDE
  2. ZOLOFT [Concomitant]
     Active Substance: SERTRALINE HYDROCHLORIDE
  3. LIDEX [Concomitant]
     Active Substance: FLUOCINONIDE
  4. INFLIXIMAB, RECOMBINANT [Suspect]
     Active Substance: INFLIXIMAB
     Indication: COLITIS ULCERATIVE
     Route: 042
     Dates: start: 20170706

REACTIONS (1)
  - Failure to thrive [Recovered/Resolved with Sequelae]

NARRATIVE: CASE EVENT DATE: 20200206
